FAERS Safety Report 13739861 (Version 1)
Quarter: 2017Q3

REPORT INFORMATION
  Report Type: Spontaneous
  Country: FR (occurrence: FR)
  Receive Date: 20170710
  Receipt Date: 20170710
  Transmission Date: 20171127
  Serious: Yes (Death, Hospitalization, Other)
  Sender: FDA-Public Use
  Company Number: PHHY2009FR25634

PATIENT
  Age: 78 Year
  Sex: Male

DRUGS (3)
  1. CARTEOLOL (NVO) [Suspect]
     Active Substance: CARTEOLOL HYDROCHLORIDE
     Indication: INTRAOCULAR PRESSURE INCREASED
     Dosage: 1 GTT, QD
     Route: 047
     Dates: start: 20090211
  2. CARTEOLOL (NVO) [Suspect]
     Active Substance: CARTEOLOL HYDROCHLORIDE
     Dosage: 1 GTT, BID
     Route: 047
     Dates: start: 20090212
  3. CARTEOLOL (NVO) [Suspect]
     Active Substance: CARTEOLOL HYDROCHLORIDE
     Dosage: 1 GTT, QD
     Route: 047
     Dates: start: 20090213

REACTIONS (6)
  - Dyspnoea exertional [Unknown]
  - Coronary artery occlusion [Unknown]
  - Cardiac procedure complication [Fatal]
  - Bradycardia [Unknown]
  - Acute pulmonary oedema [Unknown]
  - Fatigue [Unknown]

NARRATIVE: CASE EVENT DATE: 20090213
